FAERS Safety Report 24218625 (Version 1)
Quarter: 2024Q3

REPORT INFORMATION
  Report Type: Spontaneous
  Country: US (occurrence: None)
  Receive Date: 20240815
  Receipt Date: 20240815
  Transmission Date: 20241016
  Serious: Yes (Other)
  Sender: Public
  Company Number: None

PATIENT
  Age: 44 Year
  Sex: Female
  Weight: 44.3 kg

DRUGS (1)
  1. FERRIC GLUCONATE TRIHYDRATE [Suspect]
     Active Substance: FERRIC GLUCONATE TRIHYDRATE

REACTIONS (6)
  - Muscle tightness [None]
  - Burning sensation [None]
  - Peripheral swelling [None]
  - Infusion site reaction [None]
  - Back pain [None]
  - Dizziness [None]

NARRATIVE: CASE EVENT DATE: 20240624
